FAERS Safety Report 4890262-9 (Version None)
Quarter: 2005Q4

REPORT INFORMATION
  Report Type: 
  Country: None (occurrence: None)
  Receive Date: 20051220
  Receipt Date: 20050926
  Transmission Date: 20060501
  Serious: Yes (Other)
  Sender: FDA-Public Use
  Company Number: 419136

PATIENT
  Sex: Female

DRUGS (1)
  1. BONIVIA (IBANDRONIC ACID) [Suspect]
     Dosage: ORAL
     Route: 048
     Dates: start: 20050914

REACTIONS (2)
  - ABDOMINAL PAIN UPPER [None]
  - DYSPEPSIA [None]
